FAERS Safety Report 18164560 (Version 1)
Quarter: 2020Q3

REPORT INFORMATION
  Report Type: Spontaneous
  Country: US (occurrence: US)
  Receive Date: 20200818
  Receipt Date: 20200818
  Transmission Date: 20201103
  Serious: No
  Sender: FDA-Public Use
  Company Number: US-SA-2020SA210730

PATIENT

DRUGS (16)
  1. SPIRIVA [Concomitant]
     Active Substance: TIOTROPIUM BROMIDE MONOHYDRATE
  2. VENTOLINE [SALBUTAMOL] [Concomitant]
     Active Substance: ALBUTEROL SULFATE
  3. BUDESONIDE. [Concomitant]
     Active Substance: BUDESONIDE
  4. MONTELUKAST [Concomitant]
     Active Substance: MONTELUKAST SODIUM
  5. TRAMADOL. [Concomitant]
     Active Substance: TRAMADOL
  6. LISINOPRIL. [Concomitant]
     Active Substance: LISINOPRIL
  7. DUPIXENT [Suspect]
     Active Substance: DUPILUMAB
     Indication: ASTHMA
     Dosage: 300 MG, QOW
     Route: 058
     Dates: start: 20200708
  8. VERAPAMIL [Concomitant]
     Active Substance: VERAPAMIL HYDROCHLORIDE
  9. BROVANA [Concomitant]
     Active Substance: ARFORMOTEROL TARTRATE
  10. PREDNISONE. [Concomitant]
     Active Substance: PREDNISONE
  11. METOCLOPRAMIDE. [Concomitant]
     Active Substance: METOCLOPRAMIDE
  12. YUPELRI [Concomitant]
     Active Substance: REVEFENACIN
  13. AMOXICILLIN. [Concomitant]
     Active Substance: AMOXICILLIN
  14. GABAPENTIN. [Concomitant]
     Active Substance: GABAPENTIN
  15. THEOPHYLLINE [Concomitant]
     Active Substance: THEOPHYLLINE ANHYDROUS
  16. FLUTICASONE. [Concomitant]
     Active Substance: FLUTICASONE

REACTIONS (2)
  - Injection site pain [Not Recovered/Not Resolved]
  - Product use issue [Unknown]

NARRATIVE: CASE EVENT DATE: 2020
